FAERS Safety Report 14549375 (Version 2)
Quarter: 2018Q2

REPORT INFORMATION
  Report Type: Spontaneous
  Country: PL (occurrence: PL)
  Receive Date: 20180219
  Receipt Date: 20180430
  Transmission Date: 20180711
  Serious: Yes (Hospitalization, Other)
  Sender: FDA-Public Use
  Company Number: PL-ACCORD-063670

PATIENT
  Age: 85 Year
  Sex: Female

DRUGS (8)
  1. TORASEMIDE [Interacting]
     Active Substance: TORSEMIDE
     Dosage: 5 MG IN THE MORNING
  2. CARVEDILOL/CARVEDILOL HYDROCHLODRIDE [Interacting]
     Active Substance: CARVEDILOL HYDROCHLORIDE
     Dosage: 6.25 MG IN THE MORNING
  3. MIANSERIN [Interacting]
     Active Substance: MIANSERIN
     Dosage: AT BEDTIME
  4. ATORVASTATIN/ATORVASTATIN CALCIUM [Interacting]
     Active Substance: ATORVASTATIN CALCIUM
     Dosage: 20 MG AT BEDTIME
  5. ZOFENOPRIL/ZOFENOPRIL CALCIUM [Concomitant]
     Dosage: 7.5 MG IN THE MORNING
  6. DONEPEZIL/DONEPEZIL HYDROCHLORIDE [Suspect]
     Active Substance: DONEPEZIL HYDROCHLORIDE
     Dosage: IN THE MORNING
  7. SERTRALINE [Interacting]
     Active Substance: SERTRALINE HYDROCHLORIDE
     Dosage: 100 MG IN THE MORNING
  8. QUETIAPINE. [Interacting]
     Active Substance: QUETIAPINE
     Dosage: 50 MG BEFORE BEDTIME

REACTIONS (13)
  - Hyperhidrosis [Recovered/Resolved]
  - Dry mouth [Recovered/Resolved]
  - Liver disorder [Recovered/Resolved]
  - Bradycardia [Recovered/Resolved]
  - Herbal interaction [Unknown]
  - Syncope [Recovered/Resolved]
  - Abdominal pain [Recovered/Resolved]
  - Hypokalaemia [Recovered/Resolved]
  - Diarrhoea [Recovered/Resolved]
  - Muscle spasms [Recovered/Resolved]
  - Hepatitis [Recovered/Resolved]
  - Sedation complication [Recovered/Resolved]
  - Nausea [Recovered/Resolved]
